FAERS Safety Report 26042993 (Version 1)
Quarter: 2025Q4

REPORT INFORMATION
  Report Type: Spontaneous
  Country: US (occurrence: US)
  Receive Date: 20251113
  Receipt Date: 20251113
  Transmission Date: 20260118
  Serious: No
  Sender: ANI
  Company Number: US-ANIPHARMA-2025-US-046697

PATIENT
  Age: 74 Year
  Sex: Female

DRUGS (1)
  1. CORTICOTROPIN [Suspect]
     Active Substance: CORTICOTROPIN
     Indication: Systemic lupus erythematosus
     Dosage: INJECT 80 UNITS (1 SYRINGE) SUBCUTANEOUSLY EVERY 72 HOURS AS DIRECTED
     Route: 058
     Dates: start: 202508

REACTIONS (2)
  - Increased appetite [Unknown]
  - Insomnia [Unknown]
